FAERS Safety Report 23034128 (Version 1)
Quarter: 2023Q4

REPORT INFORMATION
  Report Type: Spontaneous
  Country: FR (occurrence: FR)
  Receive Date: 20231005
  Receipt Date: 20231005
  Transmission Date: 20240110
  Serious: Yes (Other)
  Sender: FDA-Public Use
  Company Number: None

PATIENT
  Age: 44 Year
  Sex: Female
  Weight: 80 kg

DRUGS (1)
  1. LYRICA [Suspect]
     Active Substance: PREGABALIN
     Indication: Pain
     Dosage: 450 MILLIGRAM, QD (225 MG CAPSULE 1-0-1)
     Route: 048
     Dates: start: 202210, end: 20230711

REACTIONS (1)
  - Gingival abscess [Recovered/Resolved]

NARRATIVE: CASE EVENT DATE: 20230201
